FAERS Safety Report 16331775 (Version 2)
Quarter: 2019Q3

REPORT INFORMATION
  Report Type: Report from Study
  Country: JP (occurrence: JP)
  Receive Date: 20190520
  Receipt Date: 20190703
  Transmission Date: 20191004
  Serious: Yes (Other)
  Sender: FDA-Public Use
  Company Number: JP-ROCHE-2315387

PATIENT
  Age: 79 Year
  Sex: Female

DRUGS (6)
  1. XOFLUZA [Suspect]
     Active Substance: BALOXAVIR MARBOXIL
     Indication: INFLUENZA
     Route: 048
     Dates: start: 20190128, end: 20190128
  2. AVAPRO [Concomitant]
     Active Substance: IRBESARTAN
     Route: 048
  3. HALCION [Concomitant]
     Active Substance: TRIAZOLAM
     Route: 048
  4. GASTER [Concomitant]
     Active Substance: FAMOTIDINE
     Route: 065
  5. MARZULENE-S [Concomitant]
     Active Substance: SODIUM GUALENATE
     Route: 048
  6. RESPLEN [Concomitant]
     Active Substance: EPRAZINONE
     Route: 048

REACTIONS (1)
  - Loss of consciousness [Recovered/Resolved]

NARRATIVE: CASE EVENT DATE: 20190128
